FAERS Safety Report 17351140 (Version 1)
Quarter: 2020Q1

REPORT INFORMATION
  Report Type: Spontaneous
  Country: TR (occurrence: TR)
  Receive Date: 20200130
  Receipt Date: 20200130
  Transmission Date: 20200409
  Serious: Yes (Hospitalization, Other)
  Sender: FDA-Public Use
  Company Number: TR-STRIDES ARCOLAB LIMITED-2020SP000679

PATIENT
  Age: 77 Year
  Sex: Male

DRUGS (9)
  1. CLARITHROMYCIN. [Suspect]
     Active Substance: CLARITHROMYCIN
     Indication: PNEUMONIA
     Dosage: 500 MILLIGRAM TABLET, BID
     Route: 065
  2. WARFARIN [Interacting]
     Active Substance: WARFARIN
     Indication: ARRHYTHMIA
  3. CORASPIN [Suspect]
     Active Substance: ASPIRIN
     Indication: CHRONIC OBSTRUCTIVE PULMONARY DISEASE
  4. WARFARIN [Interacting]
     Active Substance: WARFARIN
     Indication: HYPERTENSION
  5. WARFARIN [Interacting]
     Active Substance: WARFARIN
     Indication: CHRONIC OBSTRUCTIVE PULMONARY DISEASE
  6. CORASPIN [Suspect]
     Active Substance: ASPIRIN
     Indication: CORONARY ARTERY DISEASE
     Dosage: UNK
     Route: 065
  7. WARFARIN [Interacting]
     Active Substance: WARFARIN
     Indication: CORONARY ARTERY DISEASE
     Dosage: UNK
     Route: 065
  8. CORASPIN [Suspect]
     Active Substance: ASPIRIN
     Indication: ARRHYTHMIA
  9. CORASPIN [Suspect]
     Active Substance: ASPIRIN
     Indication: HYPERTENSION

REACTIONS (9)
  - Haematuria [Recovered/Resolved]
  - Contusion [Recovered/Resolved]
  - Urinary bladder haemorrhage [Recovered/Resolved]
  - Abdominal pain [Recovered/Resolved]
  - Urine output decreased [Recovered/Resolved]
  - Urinary bladder rupture [Recovered/Resolved]
  - Haematoma [Recovered/Resolved]
  - Drug interaction [Unknown]
  - Overdose [Unknown]
